FAERS Safety Report 10589111 (Version 2)
Quarter: 2015Q3

REPORT INFORMATION
  Report Type: Spontaneous
  Country: US (occurrence: US)
  Receive Date: 20141118
  Receipt Date: 20150818
  Transmission Date: 20151125
  Serious: No
  Sender: FDA-Public Use
  Company Number: US-GILEAD-2014-0122567

PATIENT
  Age: 75 Year
  Sex: Female

DRUGS (2)
  1. REVATIO [Concomitant]
     Active Substance: SILDENAFIL CITRATE
  2. LETAIRIS [Suspect]
     Active Substance: AMBRISENTAN
     Indication: PRODUCT USED FOR UNKNOWN INDICATION
     Dosage: 10 MG, QD
     Route: 065
     Dates: start: 20120627

REACTIONS (6)
  - Nocturnal dyspnoea [Unknown]
  - Cough [Unknown]
  - Dizziness [Unknown]
  - Chest pain [Unknown]
  - Exercise tolerance decreased [Unknown]
  - Fatigue [Unknown]
